FAERS Safety Report 18266660 (Version 1)
Quarter: 2020Q3

REPORT INFORMATION
  Report Type: Spontaneous
  Country: IT (occurrence: IT)
  Receive Date: 20200915
  Receipt Date: 20200915
  Transmission Date: 20201103
  Serious: Yes (Hospitalization, Other)
  Sender: FDA-Public Use
  Company Number: IT-BRISTOL-MYERS SQUIBB COMPANY-BMS-2020-072727

PATIENT
  Sex: Female

DRUGS (4)
  1. IMATINIB. [Suspect]
     Active Substance: IMATINIB MESYLATE
     Indication: CHRONIC MYELOID LEUKAEMIA
     Dosage: 100 MG, QD (10 OCT)(SUSPENSION)
     Route: 065
     Dates: start: 20181222
  2. IMATINIB. [Suspect]
     Active Substance: IMATINIB MESYLATE
     Dosage: 400 MG, QD (FROM 17 OCT)
     Route: 065
     Dates: end: 20181022
  3. IMATINIB. [Suspect]
     Active Substance: IMATINIB MESYLATE
     Dosage: 400 MILLIGRAM, QD
     Route: 065
     Dates: start: 20190103
  4. DASATINIB. [Suspect]
     Active Substance: DASATINIB
     Indication: CHRONIC MYELOID LEUKAEMIA
     Dosage: UNK (TYROSINE KINASE INHIBITOR (TKI) IN SECOND?LINE WITH DASATINIB)(STOPPED AFTER THREE WEEKS DUE TO
     Route: 065
     Dates: start: 20190329, end: 201904

REACTIONS (3)
  - Hyperglycaemia [Recovered/Resolved]
  - Pancytopenia [Unknown]
  - Skin infection [Unknown]
